FAERS Safety Report 9241499 (Version 1)
Quarter: 2013Q2

REPORT INFORMATION
  Report Type: Spontaneous
  Country: CA (occurrence: CA)
  Receive Date: 20130419
  Receipt Date: 20130419
  Transmission Date: 20140414
  Serious: Yes (Death, Other)
  Sender: FDA-Public Use
  Company Number: CA-CELGENEUS-028-21660-13042153

PATIENT
  Sex: 0

DRUGS (3)
  1. ABRAXANE [Suspect]
     Indication: BREAST CANCER
     Route: 065
     Dates: start: 2007
  2. ABRAXANE [Suspect]
     Route: 065
  3. ABRAXANE [Suspect]
     Route: 065

REACTIONS (5)
  - Death [Fatal]
  - Neutropenia [Unknown]
  - Febrile neutropenia [Unknown]
  - Hypersensitivity [Unknown]
  - Peripheral sensory neuropathy [Unknown]
